FAERS Safety Report 20739763 (Version 3)
Quarter: 2022Q2

REPORT INFORMATION
  Report Type: Report from Study
  Country: US (occurrence: US)
  Receive Date: 20220422
  Receipt Date: 20220629
  Transmission Date: 20220721
  Serious: Yes (Hospitalization, Other)
  Sender: FDA-Public Use
  Company Number: US-TAKEDA-2022TUS025368

PATIENT
  Sex: Male

DRUGS (2)
  1. MARIBAVIR [Suspect]
     Active Substance: MARIBAVIR
     Indication: Cytomegalovirus infection
     Dosage: 400 MILLIGRAM, BID
     Route: 048
     Dates: start: 20211230
  2. MARIBAVIR [Suspect]
     Active Substance: MARIBAVIR
     Dosage: 400 MILLIGRAM, BID
     Route: 048
     Dates: start: 202202

REACTIONS (9)
  - Cytomegalovirus viraemia [Unknown]
  - Dehydration [Unknown]
  - Syncope [Unknown]
  - Disorientation [Unknown]
  - Therapy interrupted [Unknown]
  - Decreased activity [Unknown]
  - Balance disorder [Unknown]
  - Emotional disorder [Unknown]
  - Product availability issue [Unknown]
